FAERS Safety Report 9503225 (Version 3)
Quarter: 2013Q4

REPORT INFORMATION
  Report Type: Spontaneous
  Country: BR (occurrence: BR)
  Receive Date: 20130906
  Receipt Date: 20131009
  Transmission Date: 20140711
  Serious: Yes (Hospitalization, Other)
  Sender: FDA-Public Use
  Company Number: BR-NOVOPROD-383994

PATIENT
  Age: 55 Year
  Sex: Female
  Weight: 83 kg

DRUGS (10)
  1. NOVOLIN R [Suspect]
     Indication: TYPE 2 DIABETES MELLITUS
     Dosage: ACCORDING TO BLOOD GLUCOSE LEVEL
     Route: 058
     Dates: start: 1995, end: 201306
  2. NOVORAPID FLEXPEN [Suspect]
     Indication: TYPE 2 DIABETES MELLITUS
     Dosage: 10 IU, QD
     Route: 058
     Dates: start: 201306
  3. NOVORAPID FLEXPEN [Suspect]
     Dosage: 2 IU IN BREAKFAST, 3 TO 4 IU AT LUNCH, 2 IU IN EVENING, LOWER DOSES AT DINNER
     Route: 065
  4. NOVOLIN N [Suspect]
     Indication: TYPE 2 DIABETES MELLITUS
     Dosage: UNK
     Dates: start: 1995
  5. AAS [Suspect]
     Indication: COAGULOPATHY
     Dosage: 1 TAB, QD
     Route: 048
  6. OMEPRAZOL                          /00661201/ [Concomitant]
     Indication: ABDOMINAL PAIN UPPER
     Dosage: 1 TAB, QD
     Route: 048
  7. ARACOR HCT [Concomitant]
     Indication: HYPERTENSION
     Dosage: 1 TAB, QD
     Route: 048
     Dates: start: 20130703
  8. EUTIROX [Concomitant]
     Indication: HYPOTHYROIDISM
     Dosage: 1 TAB, QD
     Route: 048
  9. SIMVASTATIN [Concomitant]
     Indication: HYPERCHOLESTEROLAEMIA
     Dosage: 1 TAB, QD
     Route: 048
  10. LANTUS [Concomitant]
     Dosage: (16 IU IN THE MORNING, 20 IU AT LUNCH AND 30 IU IN THE DINNER

REACTIONS (8)
  - Cerebrovascular accident [Unknown]
  - Cerebrovascular accident [Unknown]
  - Hypoglycaemia [Unknown]
  - Hypoglycaemia [Unknown]
  - Malaise [Unknown]
  - Hypersensitivity [Unknown]
  - Drug effect delayed [Unknown]
  - Blood glucose fluctuation [Unknown]
